FAERS Safety Report 10181079 (Version 2)
Quarter: 2014Q2

REPORT INFORMATION
  Report Type: Spontaneous
  Country: US (occurrence: US)
  Receive Date: 20140519
  Receipt Date: 20140527
  Transmission Date: 20141212
  Serious: Yes (Hospitalization)
  Sender: FDA-Public Use
  Company Number: US-AMGEN INC.-USASP2014025305

PATIENT
  Age: 75 Year
  Sex: Female

DRUGS (5)
  1. PROLIA [Suspect]
     Indication: OSTEOPOROSIS POSTMENOPAUSAL
     Dosage: 60 MG, Q6MO
     Route: 058
     Dates: start: 20140305
  2. NEXIUM                             /01479302/ [Concomitant]
  3. CALCIUM [Concomitant]
  4. VITAMIN D                          /00107901/ [Concomitant]
  5. LYRICA [Concomitant]

REACTIONS (6)
  - Pain [Unknown]
  - Nausea [Unknown]
  - Vomiting [Unknown]
  - Pain in jaw [Unknown]
  - Feeling abnormal [Unknown]
  - Bone pain [Unknown]
